FAERS Safety Report 4393027-X (Version None)
Quarter: 2004Q3

REPORT INFORMATION
  Report Type: 
  Country: None (occurrence: None)
  Receive Date: 20040708
  Receipt Date: 20040628
  Transmission Date: 20050211
  Serious: Yes (Hospitalization)
  Sender: FDA-Public Use
  Company Number: DK-GLAXOSMITHKLINE-B0337688A

PATIENT
  Age: 9 Year
  Sex: Male

DRUGS (2)
  1. SERETIDE [Suspect]
     Dosage: 2PUFF TWICE PER DAY
     Route: 055
     Dates: start: 20030101
  2. METHYLPHENIDATE HCL [Suspect]
     Indication: ATTENTION DEFICIT/HYPERACTIVITY DISORDER
     Dosage: 5MG THREE TIMES PER DAY
     Route: 048
     Dates: start: 20040616, end: 20040617

REACTIONS (9)
  - ACUTE PSYCHOSIS [None]
  - AGITATION [None]
  - ANXIETY [None]
  - CONFUSIONAL STATE [None]
  - DRUG INTERACTION [None]
  - HYPERHIDROSIS [None]
  - HYPERVENTILATION [None]
  - SOCIAL AVOIDANT BEHAVIOUR [None]
  - TREMOR [None]
